FAERS Safety Report 4605200-3 (Version None)
Quarter: 2005Q1

REPORT INFORMATION
  Report Type: 
  Country: None (occurrence: None)
  Receive Date: 20050310
  Receipt Date: 20050310
  Transmission Date: 20050727
  Serious: Yes (Death)
  Sender: FDA-Public Use
  Company Number: None

PATIENT
  Age: 77 Year
  Sex: Female
  Weight: 49 kg

DRUGS (8)
  1. GEMCITABINE  (30 MINUTE INFUSION) [Suspect]
     Indication: PANCREATIC CARCINOMA
     Dosage: 1000 MG/M2 Q WK
     Dates: start: 20050210
  2. COMPAZINE [Concomitant]
  3. SYNTHROID [Concomitant]
  4. FOSAMAX [Concomitant]
  5. ATENOLOL [Concomitant]
  6. ZANTAC [Concomitant]
  7. PANOKASE [Concomitant]
  8. HERBAL SUPPLEMENTS [Concomitant]

REACTIONS (5)
  - CONSTIPATION [None]
  - DEHYDRATION [None]
  - DISEASE PROGRESSION [None]
  - NAUSEA [None]
  - VOMITING [None]
